FAERS Safety Report 9409685 (Version 4)
Quarter: 2014Q1

REPORT INFORMATION
  Report Type: Report from Study
  Country: US (occurrence: US)
  Receive Date: 20130719
  Receipt Date: 20140322
  Transmission Date: 20141002
  Serious: Yes (Hospitalization, Other)
  Sender: FDA-Public Use
  Company Number: PHEH2013US015189

PATIENT
  Age: 39 Year
  Sex: Female

DRUGS (4)
  1. EXJADE [Suspect]
     Indication: PYRUVATE KINASE DEFICIENCY ANAEMIA
     Dosage: 1000 MG, QD
     Route: 048
  2. EXJADE [Suspect]
     Dosage: 1000 MG, QD
     Route: 048
  3. EXJADE [Suspect]
     Dosage: 500 MG, QD
     Route: 048
  4. EXJADE [Suspect]
     Dosage: 1000 MG, QD

REACTIONS (7)
  - Electrolyte imbalance [Unknown]
  - Weight increased [Unknown]
  - Pulmonary hypertension [Unknown]
  - Diplegia [Unknown]
  - Lung disorder [Unknown]
  - Extramedullary haemopoiesis [Unknown]
  - Hepatic cirrhosis [Unknown]
